FAERS Safety Report 10009036 (Version 2)
Quarter: 2014Q2

REPORT INFORMATION
  Report Type: Spontaneous
  Country: US (occurrence: US)
  Receive Date: 20140313
  Receipt Date: 20140509
  Transmission Date: 20141212
  Serious: No
  Sender: FDA-Public Use
  Company Number: US-009507513-1403USA006724

PATIENT
  Age: 67 Year
  Sex: Female
  Weight: 69.84 kg

DRUGS (4)
  1. OXYTROL FOR WOMEN [Suspect]
     Indication: PRODUCT USED FOR UNKNOWN INDICATION
     Dosage: UNK, UNKNOWN
     Route: 062
     Dates: start: 201402, end: 201403
  2. THERA TEARS [Concomitant]
     Indication: DRY EYE
     Dosage: UNK, UNKNOWN
  3. CHOLECALCIFEROL [Concomitant]
     Indication: PRODUCT USED FOR UNKNOWN INDICATION
     Dosage: 5000 IU, BIW
  4. VITAMIN A [Concomitant]
     Indication: PRODUCT USED FOR UNKNOWN INDICATION
     Dosage: 8000 IU, QW

REACTIONS (2)
  - Application site burn [Recovered/Resolved]
  - Pruritus [Recovered/Resolved]
